FAERS Safety Report 10210773 (Version 1)
Quarter: 2014Q2

REPORT INFORMATION
  Report Type: Spontaneous
  Country: US (occurrence: US)
  Receive Date: 20140602
  Receipt Date: 20140602
  Transmission Date: 20141212
  Serious: No
  Sender: FDA-Public Use
  Company Number: US-ROXANE LABORATORIES, INC.-2014-RO-00850RO

PATIENT
  Age: 61 Year
  Sex: Female
  Weight: 117 kg

DRUGS (3)
  1. PREDNISONE [Suspect]
     Indication: PRODUCT USED FOR UNKNOWN INDICATION
     Route: 065
  2. OXYGEN THERAPY [Concomitant]
     Indication: IDIOPATHIC PULMONARY FIBROSIS
     Route: 065
     Dates: start: 20130723
  3. OXYGEN THERAPY [Concomitant]
     Indication: PULMONARY HYPERTENSION

REACTIONS (2)
  - Fatigue [Unknown]
  - Insomnia [Unknown]
